FAERS Safety Report 6768268-4 (Version None)
Quarter: 2010Q2

REPORT INFORMATION
  Report Type: 
  Country: None (occurrence: None)
  Receive Date: 20100614
  Receipt Date: 20100610
  Transmission Date: 20101027
  Serious: Yes (Life-Threatening)
  Sender: FDA-Public Use
  Company Number: UG-ABBOTT-10P-165-0650253-00

PATIENT
  Age: 34 Year
  Sex: Female

DRUGS (5)
  1. ALUVIA TABLETS [Suspect]
     Indication: MALARIA PROPHYLAXIS
     Route: 048
     Dates: end: 20100603
  2. ALUVIA TABLETS [Suspect]
     Indication: HIV INFECTION
     Route: 048
     Dates: start: 20100605
  3. ZIDOVUDINE [Concomitant]
     Indication: HIV INFECTION
     Route: 048
     Dates: end: 20100603
  4. LAMIVUDINE [Concomitant]
     Indication: HIV INFECTION
     Route: 048
     Dates: end: 20100603
  5. LAMIVUDINE [Concomitant]
     Route: 048
     Dates: start: 20100605

REACTIONS (1)
  - NEUTROPENIA [None]
